FAERS Safety Report 9984659 (Version 1)
Quarter: 2014Q1

REPORT INFORMATION
  Report Type: Spontaneous
  Country: US (occurrence: US)
  Receive Date: 20140307
  Receipt Date: 20140307
  Transmission Date: 20141002
  Serious: No
  Sender: FDA-Public Use
  Company Number: US-GLAXOSMITHKLINE-A1057266A

PATIENT
  Age: 73 Year
  Sex: Male

DRUGS (6)
  1. BREO ELLIPTA [Suspect]
     Indication: INCREASED UPPER AIRWAY SECRETION
     Dosage: 1PUFF TWICE PER DAY
     Route: 055
     Dates: start: 20140117
  2. ANTIBIOTIC [Suspect]
     Indication: INCREASED UPPER AIRWAY SECRETION
     Route: 065
     Dates: start: 20140117
  3. COUGH SYRUP WITH CODEINE [Suspect]
     Indication: INCREASED UPPER AIRWAY SECRETION
     Route: 048
     Dates: start: 20140117
  4. PREVACID [Suspect]
     Indication: PRODUCT USED FOR UNKNOWN INDICATION
     Route: 048
     Dates: start: 20140117
  5. LIPITOR [Concomitant]
  6. LOSARTAN [Concomitant]

REACTIONS (2)
  - Drug interaction [Not Recovered/Not Resolved]
  - Nausea [Unknown]
